FAERS Safety Report 25681869 (Version 2)
Quarter: 2025Q3

REPORT INFORMATION
  Report Type: Report from Study
  Country: US (occurrence: US)
  Receive Date: 20250814
  Receipt Date: 20250908
  Transmission Date: 20251020
  Serious: Yes (Death, Other)
  Sender: OTSUKA
  Company Number: US-MMM-Otsuka-4AEUJXGL

PATIENT
  Age: 59 Year
  Sex: Female
  Weight: 54.3 kg

DRUGS (13)
  1. TOLVAPTAN [Suspect]
     Active Substance: TOLVAPTAN
     Indication: Inappropriate antidiuretic hormone secretion
     Dosage: 15 MG, DAILY
     Route: 065
     Dates: start: 202409, end: 20240923
  2. TOLVAPTAN [Suspect]
     Active Substance: TOLVAPTAN
     Dosage: 15 MG, QOD (ALTERNATE DAY)
     Route: 065
     Dates: start: 2024, end: 2024
  3. TOLVAPTAN [Suspect]
     Active Substance: TOLVAPTAN
     Route: 065
     Dates: start: 20241207
  4. ALBUTEROL SULFATE [Concomitant]
     Active Substance: ALBUTEROL SULFATE
     Indication: Product used for unknown indication
     Route: 050
     Dates: start: 20240923
  5. NORVASC [Concomitant]
     Active Substance: AMLODIPINE BESYLATE
     Indication: Hypertension
     Dosage: 10 MG, QD (AT BED TIME)
     Route: 048
     Dates: start: 20240111
  6. ZEBETA [Concomitant]
     Active Substance: BISOPROLOL FUMARATE
     Indication: Hypertension
     Dosage: 5 MG, QD (AT BED TIME)
     Route: 048
     Dates: start: 20240111
  7. FLUTICASONE FUROATE\VILANTEROL TRIFENATATE [Concomitant]
     Active Substance: FLUTICASONE FUROATE\VILANTEROL TRIFENATATE
     Indication: Product used for unknown indication
     Route: 050
     Dates: start: 20240924
  8. LORCET PLUS [Concomitant]
     Active Substance: ACETAMINOPHEN\HYDROCODONE BITARTRATE
     Indication: Pain
     Dosage: 1 DF, Q4HR (AS NEEDED) (10-325)
     Route: 048
     Dates: start: 20240315
  9. SINGULAIR [Concomitant]
     Active Substance: MONTELUKAST SODIUM
     Indication: Product used for unknown indication
     Dosage: 10 MG, QD (EACH DAY)
     Route: 048
  10. PROTONIX [Concomitant]
     Active Substance: PANTOPRAZOLE SODIUM
     Indication: Product used for unknown indication
     Dosage: 40 MG, QD (EC, EACH DAY)
     Route: 048
     Dates: start: 20240311
  11. XIFAXAN [Concomitant]
     Active Substance: RIFAXIMIN
     Indication: Product used for unknown indication
     Dosage: 1 DF, TID (IN THE MORNING, AT NOON, AND IN THE EVENING)
     Route: 048
     Dates: start: 20240829
  12. CARAFATE [Concomitant]
     Active Substance: SUCRALFATE
     Indication: Product used for unknown indication
     Route: 048
     Dates: start: 20240923
  13. TIOTROPIUM BROMIDE MONOHYDRATE [Concomitant]
     Active Substance: TIOTROPIUM BROMIDE MONOHYDRATE
     Indication: Product used for unknown indication
     Dosage: 2.5 ?G, BID (ACTAEROSUL SOLUTION INHALATION)
     Route: 065
     Dates: start: 20240924

REACTIONS (5)
  - Death [Fatal]
  - Renal failure [Unknown]
  - Electrolyte imbalance [Unknown]
  - Haemoglobin abnormal [Recovered/Resolved]
  - Insurance issue [Unknown]

NARRATIVE: CASE EVENT DATE: 20241210
